FAERS Safety Report 24326732 (Version 1)
Quarter: 2024Q3

REPORT INFORMATION
  Report Type: Spontaneous
  Country: US (occurrence: US)
  Receive Date: 20240917
  Receipt Date: 20240917
  Transmission Date: 20241016
  Serious: Yes (Hospitalization)
  Sender: ACCORD
  Company Number: US-MLMSERVICE-20240829-PI176376-00307-1

PATIENT
  Age: 81 Year
  Sex: Female

DRUGS (8)
  1. HYDROCHLOROTHIAZIDE [Suspect]
     Active Substance: HYDROCHLOROTHIAZIDE
     Indication: Diuretic therapy
  2. BUMETANIDE [Suspect]
     Active Substance: BUMETANIDE
     Indication: Hypervolaemia
  3. DAPAGLIFLOZIN [Suspect]
     Active Substance: DAPAGLIFLOZIN
     Indication: Diabetes mellitus
  4. GABAPENTIN [Suspect]
     Active Substance: GABAPENTIN
     Indication: Product used for unknown indication
  5. TAMOXIFEN [Suspect]
     Active Substance: TAMOXIFEN
     Indication: Breast cancer female
     Dosage: ONGOING TAMOXIFEN TREATMENT EVERY SIX MONTHS
  6. METHOCARBAMOL [Concomitant]
     Active Substance: METHOCARBAMOL
  7. METOPROLOL [Concomitant]
     Active Substance: METOPROLOL
  8. OXYCODONE [Concomitant]
     Active Substance: OXYCODONE

REACTIONS (12)
  - Liver disorder [Recovering/Resolving]
  - Hypermagnesaemia [Recovered/Resolved]
  - Alkalosis hypochloraemic [Recovered/Resolved]
  - Pancytopenia [Not Recovered/Not Resolved]
  - Metabolic encephalopathy [Recovered/Resolved]
  - Drug clearance decreased [Unknown]
  - Dehydration [Recovering/Resolving]
  - Hypernatraemia [Recovered/Resolved]
  - Myelodysplastic syndrome [Not Recovered/Not Resolved]
  - Acute kidney injury [Recovered/Resolved]
  - Hyperammonaemia [Unknown]
  - Hypokalaemia [Recovering/Resolving]
